FAERS Safety Report 15660085 (Version 3)
Quarter: 2019Q1

REPORT INFORMATION
  Report Type: Spontaneous
  Country: CA (occurrence: CA)
  Receive Date: 20181127
  Receipt Date: 20190104
  Transmission Date: 20190417
  Serious: Yes (Other)
  Sender: FDA-Public Use
  Company Number: CA-CELLTRION INC.-2018CA021842

PATIENT

DRUGS (10)
  1. INFLECTRA [Suspect]
     Active Substance: INFLIXIMAB-DYYB
     Dosage: 5 MG/KG,  (WEEK  0,2,6, THEN MAINTENANCE EVERY 8 WEEKS THEREAFTER)
     Route: 042
     Dates: start: 20180814
  2. INFLECTRA [Suspect]
     Active Substance: INFLIXIMAB-DYYB
     Dosage: 5 MG/KG,  (WEEK  0,2,6, THEN MAINTENANCE EVERY 8 WEEKS THEREAFTER)
     Route: 042
     Dates: start: 20181106
  3. PREDNISONE. [Concomitant]
     Active Substance: PREDNISONE
     Dosage: UNK
     Dates: start: 20180712
  4. AZATHIOPRINE. [Concomitant]
     Active Substance: AZATHIOPRINE
     Dosage: UNK
     Dates: start: 201707
  5. INFLECTRA [Suspect]
     Active Substance: INFLIXIMAB-DYYB
     Indication: CROHN^S DISEASE
     Dosage: 5 MG/KG, WEEK 0,2,6, THEN MAINTENANCE EVERY 8    WEEKS THEREAFTER
     Route: 042
     Dates: start: 20180803, end: 20180803
  6. INFLECTRA [Suspect]
     Active Substance: INFLIXIMAB-DYYB
     Dosage: 5 MG/KG,  (WEEK  0,2,6, THEN MAINTENANCE EVERY 8 WEEKS THEREAFTER)
     Route: 042
     Dates: start: 20180911
  7. INFLECTRA [Suspect]
     Active Substance: INFLIXIMAB-DYYB
     Dosage: 5 MG/KG,  (WEEK  0,2,6, THEN MAINTENANCE EVERY 8 WEEKS THEREAFTER)
     Route: 042
     Dates: start: 20181218, end: 20181218
  8. HYDROCORTISONE. [Concomitant]
     Active Substance: HYDROCORTISONE
  9. ACETAMINOPHEN. [Concomitant]
     Active Substance: ACETAMINOPHEN
     Dosage: UNK
     Dates: start: 20181106
  10. DIPHENHYDRAMINE. [Concomitant]
     Active Substance: DIPHENHYDRAMINE

REACTIONS (13)
  - Pruritus [Recovered/Resolved]
  - Product use issue [Unknown]
  - Erythema [Not Recovered/Not Resolved]
  - Urticaria [Recovered/Resolved]
  - Blood pressure systolic increased [Unknown]
  - Product prescribing error [Unknown]
  - Blood pressure fluctuation [Unknown]
  - Skin disorder [Not Recovered/Not Resolved]
  - Fatigue [Recovered/Resolved]
  - Haemorrhage [Not Recovered/Not Resolved]
  - Hypersensitivity [Unknown]
  - Headache [Unknown]
  - Rash [Unknown]

NARRATIVE: CASE EVENT DATE: 2018
